FAERS Safety Report 20092031 (Version 1)
Quarter: 2021Q4

REPORT INFORMATION
  Report Type: Spontaneous
  Country: US (occurrence: None)
  Receive Date: 20211119
  Receipt Date: 20211119
  Transmission Date: 20220304
  Serious: Yes (Death)
  Sender: FDA-Public Use
  Company Number: None

PATIENT
  Age: 73 Year
  Sex: Male
  Weight: 125 kg

DRUGS (1)
  1. TOCILIZUMAB [Suspect]
     Active Substance: TOCILIZUMAB
     Indication: COVID-19
     Dosage: FREQUENCY : ONCE;?
     Route: 042
     Dates: start: 20210803, end: 20210803

REACTIONS (6)
  - General physical health deterioration [None]
  - Unresponsive to stimuli [None]
  - Pupil fixed [None]
  - Hypopnoea [None]
  - Pulse absent [None]
  - Death [None]

NARRATIVE: CASE EVENT DATE: 20210809
